FAERS Safety Report 25341508 (Version 2)
Quarter: 2025Q2

REPORT INFORMATION
  Report Type: Spontaneous
  Country: GB (occurrence: GB)
  Receive Date: 20250521
  Receipt Date: 20250603
  Transmission Date: 20250717
  Serious: Yes (Hospitalization)
  Sender: MYLAN
  Company Number: GB-MYLANLABS-2025M1041858

PATIENT
  Age: 60 Year
  Sex: Male
  Weight: 68.2 kg

DRUGS (11)
  1. CLOZARIL [Suspect]
     Active Substance: CLOZAPINE
     Indication: Schizophrenia
     Dosage: UNK, BID (TWICE DAILY, 100 MGS MANE AND 300 MGS NOCTE)
     Dates: start: 20041108
  2. CLOZARIL [Suspect]
     Active Substance: CLOZAPINE
     Dosage: UNK, BID (TWICE DAILY, 100 MGS MANE AND 150 MGS NOCTE)
     Dates: start: 20250515
  3. METFORMIN [Concomitant]
     Active Substance: METFORMIN HYDROCHLORIDE
     Dosage: 500 MILLIGRAM, QD (ONCE DAILY)
     Dates: start: 20231023
  4. SERTRALINE [Concomitant]
     Active Substance: SERTRALINE HYDROCHLORIDE
     Dosage: 100 MILLIGRAM, QD (ONCE DAILY)
     Dates: start: 20231219
  5. PROMETHAZINE [Concomitant]
     Active Substance: PROMETHAZINE HYDROCHLORIDE
     Dosage: 25 MILLIGRAM, BID (TWICE DAILY)
     Dates: start: 20220610
  6. ATORVASTATIN [Concomitant]
     Active Substance: ATORVASTATIN
     Dosage: 20 MILLIGRAM, QD (ONCE DAILY)
     Dates: start: 20210916
  7. PREGABALIN [Concomitant]
     Active Substance: PREGABALIN
     Dosage: 100 MILLIGRAM, TID (THREE TIMES A DAY)
     Dates: start: 20191216
  8. PROCYCLIDINE [Concomitant]
     Active Substance: PROCYCLIDINE
     Dosage: 5 MILLIGRAM, TID (THREE TIMES A DAY)
     Dates: start: 20130108
  9. OMEPRAZOLE [Concomitant]
     Active Substance: OMEPRAZOLE
     Dosage: 20 MILLIGRAM, QD (ONCE DAILY)
     Dates: start: 20130108
  10. CREON [Concomitant]
     Active Substance: PANCRELIPASE AMYLASE\PANCRELIPASE LIPASE\PANCRELIPASE PROTEASE
     Dosage: 1 DOSAGE FORM, QD (ONE CAPSULE, ONCE DAILY)
     Dates: start: 20210513
  11. ALBUTEROL [Concomitant]
     Active Substance: ALBUTEROL

REACTIONS (1)
  - Pneumonia [Recovering/Resolving]

NARRATIVE: CASE EVENT DATE: 20250511
